FAERS Safety Report 5812622-1 (Version None)
Quarter: 2008Q3

REPORT INFORMATION
  Report Type: 
  Country: None (occurrence: None)
  Receive Date: 20080714
  Receipt Date: 20080714
  Transmission Date: 20090109
  Serious: Yes (Other)
  Sender: FDA-Public Use
  Company Number: None

PATIENT
  Age: 39 Year
  Sex: Male
  Weight: 87.0906 kg

DRUGS (2)
  1. CIPROFLOXACIN [Suspect]
     Indication: BACTERIAL INFECTION
     Dosage: 1 TABLET EVERY 12 HOURS PO
     Route: 048
     Dates: start: 20070615, end: 20070617
  2. CIPROFLOXACIN [Suspect]
     Indication: GASTROINTESTINAL DISORDER
     Dosage: 1 TABLET EVERY 12 HOURS PO
     Route: 048
     Dates: start: 20070615, end: 20070617

REACTIONS (1)
  - TENDONITIS [None]
